FAERS Safety Report 10228612 (Version 2)
Quarter: 2014Q2

REPORT INFORMATION
  Report Type: Spontaneous
  Country: JP (occurrence: JP)
  Receive Date: 20140610
  Receipt Date: 20140610
  Transmission Date: 20141212
  Serious: Yes (Other)
  Sender: FDA-Public Use
  Company Number: JP-B.I. PHARMACEUTICALS,INC./RIDGEFIELD-2014-BI-24092NB

PATIENT
  Age: 80 Year
  Sex: Female
  Weight: 39.4 kg

DRUGS (4)
  1. PRAZAXA [Suspect]
     Indication: ATRIAL FIBRILLATION
     Dosage: 150 MG
     Route: 048
     Dates: start: 20120601, end: 20131224
  2. PRAZAXA [Suspect]
     Dosage: 150 MG
     Route: 048
     Dates: start: 20130427, end: 20131224
  3. PLAVIX [Suspect]
     Indication: THROMBOSIS PROPHYLAXIS
     Route: 048
     Dates: start: 20110212
  4. ASPIRIN [Concomitant]
     Route: 065

REACTIONS (3)
  - Activated partial thromboplastin time prolonged [Not Recovered/Not Resolved]
  - Rectal ulcer haemorrhage [Recovered/Resolved]
  - Cachexia [Not Recovered/Not Resolved]
